FAERS Safety Report 5136533-2 (Version None)
Quarter: 2006Q4

REPORT INFORMATION
  Report Type: 
  Country: None (occurrence: None)
  Receive Date: 20061027
  Receipt Date: 20061025
  Transmission Date: 20070319
  Serious: Yes (Hospitalization)
  Sender: FDA-Public Use
  Company Number: ZA-BOEHRINGER INGELHEIM PHARMACEUTICALS, INC.-2006-DE-05654ZA

PATIENT
  Age: 38 Year
  Sex: Male

DRUGS (3)
  1. ATROVENT [Suspect]
     Indication: ASTHMA
     Route: 055
     Dates: end: 20061001
  2. SERETIDE 250 [Concomitant]
  3. ASTHAVENT [Concomitant]
     Dosage: PRN

REACTIONS (1)
  - DRUG INEFFECTIVE [None]
